FAERS Safety Report 8322711-8 (Version None)
Quarter: 2012Q2

REPORT INFORMATION
  Report Type: 
  Country: None (occurrence: None)
  Receive Date: 20120430
  Receipt Date: 20120424
  Transmission Date: 20120825
  Serious: Yes (Life-Threatening, Hospitalization)
  Sender: FDA-Public Use
  Company Number: FR-ABBOTT-12P-056-0928789-00

PATIENT
  Sex: Female

DRUGS (7)
  1. PROGESTERONE [Suspect]
     Indication: HORMONE REPLACEMENT THERAPY
     Route: 048
  2. ESPERAL [Suspect]
     Indication: ALCOHOLISM
     Route: 065
     Dates: start: 20110501, end: 20110601
  3. ESCITALOPRAM [Suspect]
     Indication: MAJOR DEPRESSION
     Route: 065
  4. OXAZEPAM [Concomitant]
     Indication: ANXIETY
     Route: 048
  5. ESTREVA [Concomitant]
     Indication: HORMONE REPLACEMENT THERAPY
     Route: 048
  6. IXEL [Concomitant]
     Indication: DEPRESSION
     Route: 065
  7. LEVOTHYROXINE SODIUM [Concomitant]
     Indication: HYPOTHYROIDISM
     Route: 065

REACTIONS (6)
  - LIVER DISORDER [None]
  - ASTERIXIS [None]
  - HEPATITIS TOXIC [None]
  - JAUNDICE [None]
  - HEPATIC FAILURE [None]
  - ENCEPHALOPATHY [None]
